FAERS Safety Report 5382643-4 (Version None)
Quarter: 2007Q3

REPORT INFORMATION
  Report Type: 
  Country: None (occurrence: None)
  Receive Date: 20070710
  Receipt Date: 20070702
  Transmission Date: 20080115
  Serious: Yes (Other)
  Sender: FDA-Public Use
  Company Number: BE-JNJFOC-20070700130

PATIENT
  Age: 49 Year
  Sex: Female

DRUGS (1)
  1. CAELYX [Suspect]
     Indication: BREAST CANCER
     Dosage: 7 CYCLES
     Route: 042
     Dates: start: 20070223

REACTIONS (1)
  - LICHEN PLANUS [None]
